FAERS Safety Report 24857370 (Version 1)
Quarter: 2025Q1

REPORT INFORMATION
  Report Type: Spontaneous
  Country: US (occurrence: None)
  Receive Date: 20250117
  Receipt Date: 20250117
  Transmission Date: 20250409
  Serious: Yes (Hospitalization, Other)
  Sender: FDA-CTU
  Company Number: None

PATIENT
  Age: 67 Year
  Sex: Female
  Weight: 83.7 kg

DRUGS (4)
  1. TROPICAMIDE [Suspect]
     Active Substance: TROPICAMIDE
     Indication: Product used for unknown indication
     Dates: start: 20180618, end: 20180618
  2. SYNTHROID [Concomitant]
     Active Substance: LEVOTHYROXINE SODIUM
  3. D 3 [Concomitant]
  4. B 12 [Concomitant]

REACTIONS (7)
  - Instillation site irritation [None]
  - Dizziness [None]
  - Nausea [None]
  - Vision blurred [None]
  - Contraindicated product administered [None]
  - Allergic reaction to excipient [None]
  - Atrial fibrillation [None]

NARRATIVE: CASE EVENT DATE: 20180618
